FAERS Safety Report 4401677-7 (Version None)
Quarter: 2004Q3

REPORT INFORMATION
  Report Type: 
  Country: None (occurrence: None)
  Receive Date: 20040714
  Receipt Date: 20040712
  Transmission Date: 20050211
  Serious: Yes (Hospitalization)
  Sender: FDA-Public Use
  Company Number: A403325410/PHRM2004FR02289

PATIENT
  Age: 78 Year
  Sex: Female

DRUGS (4)
  1. AK-FLOUR, 10 %, AKORN [Suspect]
     Indication: ANGIOGRAM RETINA
     Dosage: IDE, ONCE/SINGLE, IV
     Route: 042
     Dates: start: 20040610
  2. TENORMIN [Concomitant]
  3. NEOSYNEPHRYNE EYE DROPS [Concomitant]
  4. MYDRIATICUM EYE DROPS [Concomitant]

REACTIONS (4)
  - CARDIO-RESPIRATORY ARREST [None]
  - LOSS OF CONSCIOUSNESS [None]
  - MALAISE [None]
  - SYNCOPE VASOVAGAL [None]
